FAERS Safety Report 23370654 (Version 3)
Quarter: 2025Q4

REPORT INFORMATION
  Report Type: Spontaneous
  Country: EU (occurrence: EU)
  Receive Date: 20240105
  Receipt Date: 20251201
  Transmission Date: 20260118
  Serious: Yes (Other)
  Sender: PFIZER
  Company Number: EU-SANDOZ-SDZ2023HU055007

PATIENT
  Age: 37 Year
  Sex: Male
  Weight: 82 kg

DRUGS (6)
  1. SULFASALAZINE [Suspect]
     Active Substance: SULFASALAZINE
     Dosage: 3X2
     Route: 065
  2. MEDROL [Suspect]
     Active Substance: METHYLPREDNISOLONE
     Dosage: 1X
     Route: 048
  3. INFLIXIMAB [Suspect]
     Active Substance: INFLIXIMAB
     Dosage: UNK
     Route: 065
  4. INFLIXIMAB [Suspect]
     Active Substance: INFLIXIMAB
     Dosage: 40 MG EVERY 8 WEEKS(3RD INDUCTION)
     Route: 042
     Dates: start: 20231115, end: 20231115
  5. DIHYDROXYALUMINUM SODIUM CARBONATE [Suspect]
     Active Substance: DIHYDROXYALUMINUM SODIUM CARBONATE
     Dosage: 1X40 MG
     Route: 048
  6. IMURAN [Suspect]
     Active Substance: AZATHIOPRINE
     Dosage: 1X50 MG
     Route: 048

REACTIONS (9)
  - Asphyxia [Recovered/Resolved]
  - Hypersensitivity [Recovered/Resolved]
  - Erythema [Recovered/Resolved]
  - Sensation of foreign body [Unknown]
  - Hypertension [Unknown]
  - Palpitations [Unknown]
  - Urticaria [Recovered/Resolved]
  - Lip swelling [Recovered/Resolved]
  - Dysphagia [Recovered/Resolved]

NARRATIVE: CASE EVENT DATE: 20231115
